FAERS Safety Report 6948485-0 (Version None)
Quarter: 2010Q3

REPORT INFORMATION
  Report Type: 
  Country: None (occurrence: None)
  Receive Date: 20100828
  Receipt Date: 20091103
  Transmission Date: 20110219
  Serious: No
  Sender: FDA-Public Use
  Company Number: US-ABBOTT-09P-163-0606642-00

PATIENT
  Sex: Female
  Weight: 67.192 kg

DRUGS (5)
  1. NIASPAN [Suspect]
     Indication: BLOOD CHOLESTEROL INCREASED
     Dates: start: 20091001, end: 20091001
  2. NIASPAN [Suspect]
     Dates: start: 20091026
  3. UNKNOWN CHOLESTEROL MEDICATION [Concomitant]
     Indication: BLOOD CHOLESTEROL INCREASED
  4. FISH OIL [Concomitant]
     Indication: ROUTINE HEALTH MAINTENANCE
  5. BONIVA [Concomitant]
     Indication: OSTEOPOROSIS

REACTIONS (1)
  - FLUSHING [None]
